FAERS Safety Report 10698879 (Version 6)
Quarter: 2015Q2

REPORT INFORMATION
  Report Type: Report from Study
  Country: US (occurrence: US)
  Receive Date: 20150108
  Receipt Date: 20150514
  Transmission Date: 20150821
  Serious: Yes (Hospitalization)
  Sender: FDA-Public Use
  Company Number: US-EISAI MEDICAL RESEARCH-EC-2015-002879

PATIENT
  Age: 47 Year
  Sex: Female
  Weight: 75.84 kg

DRUGS (10)
  1. E2007 (TABLET) [Suspect]
     Active Substance: PERAMPANEL
     Route: 048
     Dates: start: 20131227, end: 20140402
  2. LAMICTAL [Concomitant]
     Active Substance: LAMOTRIGINE
  3. VECTICAL [Concomitant]
     Active Substance: CALCITRIOL
  4. TRILEPTAL [Concomitant]
     Active Substance: OXCARBAZEPINE
  5. E2007 (TABLET) [Suspect]
     Active Substance: PERAMPANEL
     Indication: GENERALISED TONIC-CLONIC SEIZURE
     Dosage: CORE
     Route: 048
     Dates: start: 20130730, end: 20131212
  6. MULTIVITAMINS [Concomitant]
     Active Substance: VITAMINS
  7. VITAMIN E [Concomitant]
     Active Substance: .ALPHA.-TOCOPHEROL
  8. E2007 (TABLET) [Suspect]
     Active Substance: PERAMPANEL
     Dosage: CONVERSION PERIOD
     Route: 048
     Dates: start: 20131213, end: 20131226
  9. E2007 (TABLET) [Suspect]
     Active Substance: PERAMPANEL
     Dates: start: 20140403, end: 20150108
  10. TRIAMCINOLONE [Concomitant]
     Active Substance: TRIAMCINOLONE

REACTIONS (2)
  - Endometrial hyperplasia [Recovered/Resolved]
  - Endometrial adenocarcinoma [Recovered/Resolved]

NARRATIVE: CASE EVENT DATE: 20140823
